FAERS Safety Report 9790593 (Version 2)
Quarter: 2014Q1

REPORT INFORMATION
  Report Type: Spontaneous
  Country: SE (occurrence: SE)
  Receive Date: 20131231
  Receipt Date: 20140213
  Transmission Date: 20141002
  Serious: Yes (Hospitalization)
  Sender: FDA-Public Use
  Company Number: CHNY2013SE002895

PATIENT
  Age: 25 Year
  Sex: Male

DRUGS (5)
  1. RITALIN [Suspect]
     Dosage: UNK UKN, UNK
  2. SERTRALINE [Suspect]
     Dosage: UNK UKN, UNK
  3. STRATTERA [Suspect]
     Dosage: UNK UKN, UNK
  4. OXASCAND [Suspect]
     Dosage: UNK UKN, UNK
  5. IMOVANE [Suspect]
     Dosage: UNK UKN, UNK

REACTIONS (2)
  - Toxicity to various agents [Unknown]
  - Intentional self-injury [Unknown]
